FAERS Safety Report 8147047-X (Version None)
Quarter: 2012Q1

REPORT INFORMATION
  Report Type: 
  Country: None (occurrence: None)
  Receive Date: 20120218
  Receipt Date: 20110106
  Transmission Date: 20120608
  Serious: No
  Sender: FDA-Public Use
  Company Number: US-ALLERGAN-1100171US

PATIENT
  Age: 34 Year
  Sex: Female

DRUGS (1)
  1. BOTOX COSMETIC [Suspect]
     Indication: SKIN WRINKLING
     Dosage: 25 UNITS, SINGLE
     Route: 030
     Dates: start: 20101230, end: 20101230

REACTIONS (6)
  - BLEPHARITIS [None]
  - VOMITING [None]
  - HEADACHE [None]
  - NAUSEA [None]
  - THROAT TIGHTNESS [None]
  - CHEST DISCOMFORT [None]
